FAERS Safety Report 6187800-5 (Version None)
Quarter: 2009Q2

REPORT INFORMATION
  Report Type: 
  Country: None (occurrence: None)
  Receive Date: 20090511
  Receipt Date: 20090511
  Transmission Date: 20091009
  Serious: Yes (Hospitalization, Disabling)
  Sender: FDA-Public Use
  Company Number: None

PATIENT
  Sex: Male
  Weight: 77.1115 kg

DRUGS (3)
  1. LEVAQUIN [Suspect]
     Indication: BRONCHITIS
     Dosage: ONE 500MG DAILY FOR 10 DAYS
     Dates: start: 20090203, end: 20090212
  2. LEVAQUIN [Suspect]
     Indication: OROPHARYNGEAL PAIN
     Dosage: ONE 500MG DAILY FOR 10 DAYS
     Dates: start: 20090203, end: 20090212
  3. LEVAQUIN [Suspect]
     Indication: SINUSITIS
     Dosage: ONE 500MG DAILY FOR 10 DAYS
     Dates: start: 20090203, end: 20090212

REACTIONS (2)
  - DIVERTICULITIS [None]
  - GASTROINTESTINAL DISORDER [None]
